FAERS Safety Report 6612238-3 (Version None)
Quarter: 2010Q1

REPORT INFORMATION
  Report Type: 
  Country: None (occurrence: None)
  Receive Date: 20100303
  Receipt Date: 20100225
  Transmission Date: 20100710
  Serious: Yes (Hospitalization)
  Sender: FDA-Public Use
  Company Number: DE-ABBOTT-10P-062-0628956-00

PATIENT
  Age: 39 Year
  Sex: Female

DRUGS (3)
  1. HUMIRA [Suspect]
     Indication: CROHN'S DISEASE
     Route: 058
     Dates: start: 20090801, end: 20100101
  2. HUMIRA [Suspect]
     Route: 058
     Dates: start: 20100101
  3. CORTISONE [Concomitant]
     Indication: CROHN'S DISEASE
     Dates: start: 20100101

REACTIONS (1)
  - ASTHENIA [None]
